FAERS Safety Report 8139190-6 (Version None)
Quarter: 2012Q1

REPORT INFORMATION
  Report Type: 
  Country: None (occurrence: None)
  Receive Date: 20120215
  Receipt Date: 20120202
  Transmission Date: 20120608
  Serious: Yes (Hospitalization)
  Sender: FDA-Public Use
  Company Number: 2012SP000404

PATIENT
  Age: 69 Year
  Sex: Female

DRUGS (6)
  1. CELEBREX [Concomitant]
     Indication: OSTEOARTHRITIS
     Dates: start: 20120101
  2. BROVANA [Suspect]
     Indication: CHRONIC OBSTRUCTIVE PULMONARY DISEASE
     Route: 055
     Dates: start: 20111101
  3. BACLOFEN [Concomitant]
     Indication: MUSCLE RELAXANT THERAPY
     Dates: start: 20120126
  4. ROPINIROLE [Concomitant]
     Indication: PRODUCT USED FOR UNKNOWN INDICATION
  5. PREDNISONE TAB [Concomitant]
     Indication: LUNG DISORDER
  6. ORPHENADRINE CITRATE [Concomitant]
     Indication: PRODUCT USED FOR UNKNOWN INDICATION
     Dates: start: 20120202

REACTIONS (5)
  - FUNGAL INFECTION [None]
  - MUSCLE SPASMS [None]
  - PNEUMONIA [None]
  - LABORATORY TEST ABNORMAL [None]
  - BLOOD CREATINE PHOSPHOKINASE DECREASED [None]
